FAERS Safety Report 9321996 (Version 1)
Quarter: 2013Q2

REPORT INFORMATION
  Report Type: Report from Study
  Country: CA (occurrence: CA)
  Receive Date: 20130531
  Receipt Date: 20130531
  Transmission Date: 20140414
  Serious: Yes (Hospitalization, Other)
  Sender: FDA-Public Use
  Company Number: CA-JNJFOC-20130520206

PATIENT
  Sex: Male
  Weight: 77.8 kg

DRUGS (9)
  1. REMICADE [Suspect]
     Indication: RHEUMATOID ARTHRITIS
     Route: 042
     Dates: start: 20080130
  2. FOLIC ACID [Concomitant]
     Route: 065
  3. METHOTREXATE [Concomitant]
     Route: 065
  4. CITALOPRAM [Concomitant]
     Route: 065
  5. PREDNISONE [Concomitant]
     Route: 065
  6. VENTOLIN [Concomitant]
     Route: 065
  7. ASA [Concomitant]
     Route: 065
  8. PANADOL [Concomitant]
     Route: 065
  9. ANAVAR [Concomitant]
     Route: 065

REACTIONS (2)
  - Hallucination [Unknown]
  - Hospitalisation [Unknown]
